FAERS Safety Report 9955577 (Version 1)
Quarter: 2014Q1

REPORT INFORMATION
  Report Type: Report from Study
  Country: US (occurrence: US)
  Receive Date: 20140304
  Receipt Date: 20140304
  Transmission Date: 20141002
  Serious: No
  Sender: FDA-Public Use
  Company Number: US-ABBVIE-13P-163-1086339-00

PATIENT
  Age: 60 Year
  Sex: Male

DRUGS (5)
  1. HUMIRA [Suspect]
     Indication: COLITIS ULCERATIVE
     Dosage: LOADING DOSE
     Dates: start: 20130123
  2. HUMIRA [Suspect]
     Dosage: LOADING DOSE
  3. HUMIRA [Suspect]
     Dates: end: 20130417
  4. COLAZOL [Concomitant]
     Indication: COLITIS ULCERATIVE
  5. PREDNISONE [Concomitant]
     Indication: COLITIS ULCERATIVE
     Dosage: SLOW RELEASE
     Dates: start: 20130502

REACTIONS (2)
  - Hypoaesthesia [Recovering/Resolving]
  - Paraesthesia [Recovering/Resolving]
